FAERS Safety Report 6207468-9 (Version None)
Quarter: 2009Q2

REPORT INFORMATION
  Report Type: 
  Country: None (occurrence: None)
  Receive Date: 20090528
  Receipt Date: 20090518
  Transmission Date: 20091009
  Serious: Yes (Life-Threatening, Hospitalization)
  Sender: FDA-Public Use
  Company Number: NL-PFIZER INC-2006155537

PATIENT
  Age: 56 Year

DRUGS (8)
  1. SILDENAFIL CITRATE [Suspect]
     Indication: PULMONARY HYPERTENSION
     Dosage: 20 MG, 1X/DAY
     Route: 048
     Dates: start: 20040407, end: 20060902
  2. FLOLAN [Concomitant]
  3. LITHIUM [Concomitant]
  4. VALIUM [Concomitant]
  5. ANAFRANIL [Concomitant]
  6. TEMAZEPAM [Concomitant]
  7. NOZINAN [Concomitant]
  8. PHENERGAN ^AVENTIS PHARMA^ [Concomitant]

REACTIONS (1)
  - SUICIDE ATTEMPT [None]
